FAERS Safety Report 5760278-9 (Version None)
Quarter: 2008Q2

REPORT INFORMATION
  Report Type: 
  Country: None (occurrence: None)
  Receive Date: 20080602
  Receipt Date: 20080521
  Transmission Date: 20081010
  Serious: Yes (Hospitalization)
  Sender: FDA-Public Use
  Company Number: TPG2008A00718

PATIENT
  Age: 69 Year
  Sex: Male

DRUGS (1)
  1. ACTOS [Suspect]
     Indication: TYPE 2 DIABETES MELLITUS
     Dosage: 90 MG (45 MG,2 IN 1 D)
     Route: 048

REACTIONS (4)
  - ASCITES [None]
  - MALAISE [None]
  - OVERDOSE [None]
  - PLEURAL EFFUSION [None]
